FAERS Safety Report 6548957-7 (Version None)
Quarter: 2010Q1

REPORT INFORMATION
  Report Type: 
  Country: None (occurrence: None)
  Receive Date: 20100125
  Receipt Date: 20100112
  Transmission Date: 20100710
  Serious: Yes (Hospitalization, Other)
  Sender: FDA-Public Use
  Company Number: US-RANBAXY-2009US-29491

PATIENT

DRUGS (3)
  1. NITROFURANTOIN MONOHYDRATE/MACROCRYSTALS [Suspect]
     Indication: PROPHYLAXIS URINARY TRACT INFECTION
     Dosage: 100 MG, QD
     Route: 065
     Dates: start: 20080901, end: 20081001
  2. NITROFURANTOIN MONOHYDRATE/MACROCRYSTALS [Suspect]
     Dosage: UNK, UNK
     Dates: start: 20081013
  3. NITROFURANTOIN MONOHYDRATE/MACROCRYSTALS [Suspect]
     Dosage: UNK, UNK
     Dates: start: 20081020

REACTIONS (1)
  - SYSTEMIC INFLAMMATORY RESPONSE SYNDROME [None]
